FAERS Safety Report 11458288 (Version 1)
Quarter: 2015Q3

REPORT INFORMATION
  Report Type: Spontaneous
  Country: US (occurrence: US)
  Receive Date: 20150904
  Receipt Date: 20150904
  Transmission Date: 20151125
  Serious: Yes (Hospitalization)
  Sender: FDA-Public Use
  Company Number: US-TEVA-591057USA

PATIENT
  Age: 80 Year
  Sex: Female

DRUGS (4)
  1. SALBUTAMOL [Suspect]
     Active Substance: ALBUTEROL
     Indication: ASTHMA
     Dosage: FREQUENCY: AS NEEDED
     Route: 055
  2. MEPREDNISONE [Concomitant]
     Active Substance: MEPREDNISONE
     Indication: ASTHMA
     Route: 042
  3. ASPIRIN. [Concomitant]
     Active Substance: ASPIRIN
     Route: 065
  4. SALBUTAMOL W/IPRATROPIUM [Suspect]
     Active Substance: ALBUTEROL\IPRATROPIUM
     Indication: ASTHMA
     Route: 065

REACTIONS (2)
  - Asthma [Recovering/Resolving]
  - Stress cardiomyopathy [Recovered/Resolved]
